FAERS Safety Report 9513969 (Version 3)
Quarter: 2013Q4

REPORT INFORMATION
  Report Type: Spontaneous
  Country: US (occurrence: US)
  Receive Date: 20130910
  Receipt Date: 20131015
  Transmission Date: 20140711
  Serious: Yes (Other)
  Sender: FDA-Public Use
  Company Number: US-PFIZER INC-2013257719

PATIENT
  Age: 61 Year
  Sex: Female
  Weight: 55.8 kg

DRUGS (5)
  1. LEVOXYL [Suspect]
     Indication: THYROID HORMONE REPLACEMENT THERAPY
     Dosage: 112 UG, 1X/DAY
     Route: 048
     Dates: start: 200505, end: 201306
  2. LEVOXYL [Suspect]
     Dosage: 112 UG, 1X/DAY
     Route: 048
     Dates: start: 2006
  3. MORPHINE [Concomitant]
     Indication: PAIN
     Dosage: 15 MG, 4X/DAY
     Route: 048
  4. OXYCODONE [Concomitant]
     Indication: PAIN
     Dosage: UNK
  5. NYSTATIN [Concomitant]
     Indication: FUNGAL INFECTION
     Dosage: UNK, 3X/DAY

REACTIONS (2)
  - Spinal disorder [Unknown]
  - Body height decreased [Unknown]
